FAERS Safety Report 8635313 (Version 4)
Quarter: 2013Q4

REPORT INFORMATION
  Report Type: Spontaneous
  Country: US (occurrence: US)
  Receive Date: 20120626
  Receipt Date: 20131212
  Transmission Date: 20140711
  Serious: Yes (Other)
  Sender: FDA-Public Use
  Company Number: US-ASTRAZENECA-2012SE07600

PATIENT
  Age: 30 Year
  Sex: Male
  Weight: 68 kg

DRUGS (26)
  1. SEROQUEL [Suspect]
     Indication: SLEEP DISORDER
     Route: 048
     Dates: start: 2004
  2. SEROQUEL [Suspect]
     Indication: MIGRAINE
     Route: 048
     Dates: start: 2004
  3. SEROQUEL [Suspect]
     Indication: ANXIETY
     Route: 048
     Dates: start: 2004
  4. SEROQUEL [Suspect]
     Indication: DEPRESSION
     Route: 048
     Dates: start: 2004
  5. SEROQUEL [Suspect]
     Indication: SLEEP DISORDER
     Route: 048
     Dates: start: 2006
  6. SEROQUEL [Suspect]
     Indication: MIGRAINE
     Route: 048
     Dates: start: 2006
  7. SEROQUEL [Suspect]
     Indication: ANXIETY
     Route: 048
     Dates: start: 2006
  8. SEROQUEL [Suspect]
     Indication: DEPRESSION
     Route: 048
     Dates: start: 2006
  9. SEROQUEL [Suspect]
     Indication: SLEEP DISORDER
     Route: 048
  10. SEROQUEL [Suspect]
     Indication: MIGRAINE
     Route: 048
  11. SEROQUEL [Suspect]
     Indication: ANXIETY
     Route: 048
  12. SEROQUEL [Suspect]
     Indication: DEPRESSION
     Route: 048
  13. SEROQUEL [Suspect]
     Indication: SLEEP DISORDER
     Dosage: 1/2 TABLET
     Route: 048
  14. SEROQUEL [Suspect]
     Indication: MIGRAINE
     Dosage: 1/2 TABLET
     Route: 048
  15. SEROQUEL [Suspect]
     Indication: ANXIETY
     Dosage: 1/2 TABLET
     Route: 048
  16. SEROQUEL [Suspect]
     Indication: DEPRESSION
     Dosage: 1/2 TABLET
     Route: 048
  17. SEROQUEL [Suspect]
     Indication: SLEEP DISORDER
     Route: 048
  18. SEROQUEL [Suspect]
     Indication: MIGRAINE
     Route: 048
  19. SEROQUEL [Suspect]
     Indication: ANXIETY
     Route: 048
  20. SEROQUEL [Suspect]
     Indication: DEPRESSION
     Route: 048
  21. PAXIL [Suspect]
     Indication: DEPRESSION
     Route: 048
  22. XANAX [Suspect]
     Indication: ANXIETY
     Route: 048
     Dates: start: 2005
  23. PERCOCET [Suspect]
     Indication: TOOTHACHE
     Route: 048
  24. PERCOCET [Suspect]
     Indication: TOOTHACHE
     Dosage: Q6H PRN
     Route: 048
  25. LEXAPRO [Concomitant]
     Indication: DEPRESSION
     Route: 048
     Dates: start: 2005
  26. CELEXA [Concomitant]
     Indication: DEPRESSION
     Route: 048

REACTIONS (19)
  - Nephrolithiasis [Unknown]
  - Malaise [Unknown]
  - Insomnia [Unknown]
  - Feeling abnormal [Unknown]
  - Feeling abnormal [Unknown]
  - Impaired work ability [Unknown]
  - Drug effect increased [Unknown]
  - Adverse event [Unknown]
  - Renal pain [Unknown]
  - Panic attack [Unknown]
  - Drug screen false positive [Unknown]
  - Depression [Unknown]
  - Somnolence [Unknown]
  - Vomiting [Unknown]
  - Somnolence [Unknown]
  - Off label use [Unknown]
  - Drug ineffective [Unknown]
  - Drug dose omission [Unknown]
  - Intentional drug misuse [Unknown]
